FAERS Safety Report 9742104 (Version 1)
Quarter: 2013Q4

REPORT INFORMATION
  Report Type: Other
  Country: US (occurrence: US)
  Receive Date: 20131210
  Receipt Date: 20131210
  Transmission Date: 20140711
  Serious: Yes (Hospitalization)
  Sender: FDA-Public Use
  Company Number: US-SHIRE-ALL1-2013-08334

PATIENT
  Age: 19 Year
  Sex: Female

DRUGS (1)
  1. FIRAZYR [Suspect]
     Indication: HEREDITARY ANGIOEDEMA
     Dosage: 30 MG, AS REQ^D(EVERY 6 HOURS)
     Route: 058
     Dates: start: 20131022

REACTIONS (2)
  - Laryngeal oedema [Unknown]
  - Hereditary angioedema [Unknown]
